FAERS Safety Report 9147650 (Version 1)
Quarter: 2013Q1

REPORT INFORMATION
  Report Type: Spontaneous
  Country: AU (occurrence: AU)
  Receive Date: 20130307
  Receipt Date: 20130307
  Transmission Date: 20140127
  Serious: Yes (Other)
  Sender: FDA-Public Use
  Company Number: AU-009507513-1303AUS001549

PATIENT
  Sex: Male

DRUGS (2)
  1. SAPHRIS [Suspect]
     Route: 048
  2. OLANZAPINE [Suspect]

REACTIONS (3)
  - Fall [Unknown]
  - Convulsion [Unknown]
  - Dizziness [Unknown]
